FAERS Safety Report 7323618-5 (Version None)
Quarter: 2011Q1

REPORT INFORMATION
  Report Type: 
  Country: None (occurrence: None)
  Receive Date: 20110301
  Receipt Date: 20110224
  Transmission Date: 20110831
  Serious: Yes (Hospitalization)
  Sender: FDA-Public Use
  Company Number: DE-ROCHE-762019

PATIENT
  Sex: Male
  Weight: 94.3 kg

DRUGS (2)
  1. CAPECITABINE [Suspect]
     Indication: RECTAL CANCER
     Dosage: ACTUAL DOSE: 1750 MG
     Route: 048
     Dates: start: 20101110
  2. RAMIPRIL [Concomitant]
     Indication: HYPERTONIA

REACTIONS (1)
  - ANASTOMOTIC LEAK [None]
